FAERS Safety Report 15373910 (Version 1)
Quarter: 2018Q3

REPORT INFORMATION
  Report Type: Spontaneous
  Country: US (occurrence: US)
  Receive Date: 20180905
  Receipt Date: 20180905
  Transmission Date: 20181010
  Serious: No
  Sender: FDA-Public Use
  Company Number: None

PATIENT
  Age: 54 Year
  Sex: Male

DRUGS (1)
  1. ENBREL [Suspect]
     Active Substance: ETANERCEPT
     Dates: start: 201708

REACTIONS (6)
  - Dizziness [None]
  - Headache [None]
  - Tinnitus [None]
  - Thirst [None]
  - Nervousness [None]
  - Red blood cell count increased [None]

NARRATIVE: CASE EVENT DATE: 20180821
